FAERS Safety Report 13544657 (Version 3)
Quarter: 2017Q4

REPORT INFORMATION
  Report Type: Report from Study
  Country: None (occurrence: US)
  Receive Date: 20170515
  Receipt Date: 20171109
  Transmission Date: 20180320
  Serious: Yes (Other)
  Sender: FDA-Public Use
  Company Number: US-ABBVIE-17K-163-1970690-00

PATIENT
  Sex: Female

DRUGS (2)
  1. HUMIRA [Suspect]
     Active Substance: ADALIMUMAB
     Indication: CROHN^S DISEASE
     Route: 058
  2. HUMIRA [Suspect]
     Active Substance: ADALIMUMAB
     Indication: RHEUMATOID ARTHRITIS
     Route: 058

REACTIONS (10)
  - Perineal injury [Unknown]
  - Skin exfoliation [Recovered/Resolved]
  - Abdominal pain [Unknown]
  - Seasonal allergy [Unknown]
  - Pruritus [Unknown]
  - Rash erythematous [Unknown]
  - Pruritus [Recovered/Resolved]
  - Fibromyalgia [Unknown]
  - Skin exfoliation [Unknown]
  - Haematochezia [Unknown]

NARRATIVE: CASE EVENT DATE: 2017
